FAERS Safety Report 10527241 (Version 2)
Quarter: 2014Q4

REPORT INFORMATION
  Report Type: Spontaneous
  Country: US (occurrence: US)
  Receive Date: 20141020
  Receipt Date: 20141020
  Transmission Date: 20150528
  Serious: Yes (Other)
  Sender: FDA-Public Use
  Company Number: US-LUNDBECK-DKLU1095292

PATIENT
  Age: 20 Year
  Sex: Female

DRUGS (6)
  1. SABRIL [Concomitant]
     Active Substance: VIGABATRIN
     Indication: COMPLEX PARTIAL SEIZURES
     Dates: start: 20130807
  2. SABRIL [Concomitant]
     Active Substance: VIGABATRIN
     Indication: TEMPORAL LOBE EPILEPSY
  3. SABRIL [Concomitant]
     Active Substance: VIGABATRIN
     Indication: EPILEPSY
  4. SABRIL [Suspect]
     Active Substance: VIGABATRIN
     Indication: COMPLEX PARTIAL SEIZURES
     Route: 048
     Dates: start: 20130911
  5. SABRIL [Suspect]
     Active Substance: VIGABATRIN
     Indication: TEMPORAL LOBE EPILEPSY
  6. SABRIL [Suspect]
     Active Substance: VIGABATRIN
     Indication: EPILEPSY

REACTIONS (2)
  - Seizure [Unknown]
  - Drug dose omission [Unknown]

NARRATIVE: CASE EVENT DATE: 20131105
